FAERS Safety Report 6453954-6 (Version None)
Quarter: 2009Q4

REPORT INFORMATION
  Report Type: 
  Country: None (occurrence: None)
  Receive Date: 20091124
  Receipt Date: 20091112
  Transmission Date: 20100525
  Serious: Yes (Other)
  Sender: FDA-Public Use
  Company Number: US-WYE-H10583609

PATIENT
  Sex: Female
  Weight: 92.62 kg

DRUGS (10)
  1. PRISTIQ [Suspect]
     Indication: MAJOR DEPRESSION
     Route: 048
     Dates: start: 20081008, end: 20090909
  2. PRISTIQ [Suspect]
     Route: 048
     Dates: start: 20090910
  3. PREDNISONE [Concomitant]
     Indication: RADICULAR SYNDROME
     Dosage: 60 X4, 40 X2, 20 X2, 10 X2
     Route: 048
     Dates: start: 20090713, end: 20090701
  4. FISH OIL, HYDROGENATED [Concomitant]
  5. K-DUR [Concomitant]
  6. VITAMIN B-12 [Concomitant]
  7. VITAMINS [Concomitant]
  8. VICODIN [Suspect]
     Indication: RADICULAR SYNDROME
     Dosage: 5/500  4 X DAILY AS NEEDED FOR PAIN
     Route: 048
     Dates: start: 20090713, end: 20090803
  9. VICODIN [Suspect]
     Indication: PAIN
  10. HYZAAR [Concomitant]
     Indication: HYPERTENSION
     Dosage: 100/25 A HALF TWICE DAILY
     Route: 048

REACTIONS (8)
  - CHILLS [None]
  - DIARRHOEA [None]
  - FATIGUE [None]
  - HYPERHIDROSIS [None]
  - MORBID THOUGHTS [None]
  - SOMNOLENCE [None]
  - SUICIDAL IDEATION [None]
  - TENSION [None]
